FAERS Safety Report 14981980 (Version 3)
Quarter: 2021Q2

REPORT INFORMATION
  Report Type: Spontaneous
  Country: US (occurrence: US)
  Receive Date: 20180607
  Receipt Date: 20210510
  Transmission Date: 20210716
  Serious: Yes (Other)
  Sender: FDA-Public Use
  Company Number: US-ASTRAZENECA-2018SE63766

PATIENT
  Age: 11911 Day
  Sex: Female
  Weight: 205 kg

DRUGS (12)
  1. SYMBICORT [Suspect]
     Active Substance: BUDESONIDE\FORMOTEROL FUMARATE DIHYDRATE
     Indication: ASTHMA
     Dosage: 160/4.5 2 PUFFS TWO TIMES A DAY
     Route: 055
  2. PREDNISONE. [Suspect]
     Active Substance: PREDNISONE
     Route: 065
  3. NUCALA [Suspect]
     Active Substance: MEPOLIZUMAB
     Route: 065
  4. LEVOCETIRIZINE [Concomitant]
     Active Substance: LEVOCETIRIZINE
     Indication: MULTIPLE ALLERGIES
  5. FASENRA [Suspect]
     Active Substance: BENRALIZUMAB
     Indication: EOSINOPHIL COUNT INCREASED
     Route: 058
     Dates: start: 202012
  6. COMBIVENT [Concomitant]
     Active Substance: ALBUTEROL SULFATE\IPRATROPIUM BROMIDE
     Indication: ASTHMA
  7. MONTELUKAST [Concomitant]
     Active Substance: MONTELUKAST SODIUM
     Indication: MULTIPLE ALLERGIES
  8. FASENRA [Suspect]
     Active Substance: BENRALIZUMAB
     Indication: ASTHMA
     Route: 058
     Dates: start: 202012
  9. BENDRYL [ACETAMINOPHEN\DIPHENHYDRAMINE\PHENYLPROPANOLAMINE] [Suspect]
     Active Substance: ACETAMINOPHEN\DIPHENHYDRAMINE\PHENYLPROPANOLAMINE
     Route: 065
  10. FASENRA [Suspect]
     Active Substance: BENRALIZUMAB
     Indication: EOSINOPHIL COUNT INCREASED
     Dosage: EVERY FOUR WEEKS
     Route: 058
     Dates: start: 2017, end: 2018
  11. FASENRA [Suspect]
     Active Substance: BENRALIZUMAB
     Indication: ASTHMA
     Dosage: EVERY FOUR WEEKS
     Route: 058
     Dates: start: 2017, end: 2018
  12. FLUCONAZOLE. [Concomitant]
     Active Substance: FLUCONAZOLE
     Indication: MULTIPLE ALLERGIES
     Dosage: 15MG NASAL SPRAY USED AT LEAST 2 TIMES DAILY

REACTIONS (15)
  - General physical health deterioration [Unknown]
  - Ectopic pregnancy [Unknown]
  - Cushing^s syndrome [Unknown]
  - Dizziness [Not Recovered/Not Resolved]
  - Somnolence [Recovered/Resolved]
  - Malaise [Unknown]
  - Ear canal injury [Unknown]
  - Weight increased [Unknown]
  - Drug hypersensitivity [Not Recovered/Not Resolved]
  - Drug ineffective [Unknown]
  - Inappropriate schedule of product administration [Unknown]
  - Weight decreased [Recovered/Resolved]
  - Nausea [Not Recovered/Not Resolved]
  - Hypoacusis [Unknown]
  - Bronchial secretion retention [Unknown]

NARRATIVE: CASE EVENT DATE: 20180509
